FAERS Safety Report 7677549-1 (Version None)
Quarter: 2011Q3

REPORT INFORMATION
  Report Type: 
  Country: None (occurrence: None)
  Receive Date: 20110811
  Receipt Date: 20110801
  Transmission Date: 20111222
  Serious: Yes (Hospitalization)
  Sender: FDA-Public Use
  Company Number: US-JNJFOC-20090707762

PATIENT
  Sex: Female
  Weight: 24 kg

DRUGS (12)
  1. METHOTREXATE [Concomitant]
  2. PREVACID [Concomitant]
  3. REMICADE [Suspect]
     Route: 042
     Dates: start: 20060914
  4. REMICADE [Suspect]
     Route: 042
     Dates: start: 20060914
  5. REMICADE [Suspect]
     Indication: DRUG DEPENDENCE
     Route: 042
     Dates: start: 20040116
  6. FOLIC ACID [Concomitant]
  7. PREDNISONE [Concomitant]
  8. REMICADE [Suspect]
     Route: 042
     Dates: start: 20031230
  9. REMICADE [Suspect]
     Indication: CROHN'S DISEASE
     Route: 042
     Dates: start: 20040116
  10. REMICADE [Suspect]
     Route: 042
     Dates: start: 20031230
  11. PREDNISONE [Concomitant]
  12. CELEXA [Concomitant]

REACTIONS (2)
  - PYREXIA [None]
  - CROHN'S DISEASE [None]
